FAERS Safety Report 10174000 (Version 1)
Quarter: 2014Q2

REPORT INFORMATION
  Report Type: Spontaneous
  Country: US (occurrence: US)
  Receive Date: 20140515
  Receipt Date: 20140515
  Transmission Date: 20141212
  Serious: No
  Sender: FDA-Public Use
  Company Number: US-PFIZER INC-2014128060

PATIENT
  Age: 79 Year
  Sex: Female
  Weight: 58.5 kg

DRUGS (21)
  1. REVATIO [Suspect]
     Indication: PULMONARY HYPERTENSION
     Dosage: 20 MG, 2X/DAY (TAKE 1 TAB BY MOUTH TWICE DAILY)
     Route: 048
  2. XANAX [Suspect]
     Dosage: 0.5 MG, AS NEEDED
     Route: 048
  3. EFFEXOR [Suspect]
     Dosage: 75 MG, 2X/DAY
     Route: 048
  4. COUMADIN [Concomitant]
     Dosage: 5 MG, 1-2 TABS AS DIRECTED BY WEEKLY INR
     Route: 048
  5. PROVENTIL [Concomitant]
     Dosage: 2.5 MG, EVERY 4 HOURS AS NEEDED
     Route: 055
  6. VENTOLIN [Concomitant]
     Dosage: 2.5 MG, EVERY 4 HOURS AS NEEDED
     Route: 055
  7. FERROUS SULFATE [Concomitant]
     Dosage: 325 MG, 1X/DAY (TAKE 325 MG BY MOUTH ONCE DAILY)
     Route: 048
  8. FORADIL [Concomitant]
     Dosage: INHALE 12 MCG INTO THE LUNGS EVERY 12 HOURS
     Route: 055
  9. LASIX [Concomitant]
     Dosage: 20 MG, ONCE DAILY
     Route: 048
  10. MUCINEX [Concomitant]
     Dosage: 600 MG, EVERY 12 HOURS
     Route: 048
  11. SYNTHROID [Concomitant]
     Dosage: 50 UG, ONCE DAILY
     Route: 048
  12. LEVOTHROID [Concomitant]
     Dosage: 50 UG, ONCE DAILY
     Route: 048
  13. NYSTATIN [Concomitant]
     Dosage: 500000 UNITS EVERY 6 HOURS
     Route: 048
  14. MIRALAX [Concomitant]
     Dosage: 17 G, ONCE DAILY
     Route: 048
  15. TYLENOL [Concomitant]
     Dosage: 650 MG, EVERY 4 HOURS AS NEEDED
     Route: 048
  16. COLACE [Concomitant]
     Dosage: 100 MG, 2X/DAY AS NEEDED
     Route: 048
  17. LOPRESSOR [Concomitant]
     Dosage: 100 MG, 2X/DAY
     Route: 048
  18. MICRO-K [Concomitant]
     Dosage: 1 DF, 2X/DAY (10 MEQ TWICE DAILY)
     Route: 048
  19. ZOCOR [Concomitant]
     Dosage: 40 MG, ONCE EVERY NIGHT AT BEDTIME
     Route: 048
  20. LANOXIN [Concomitant]
     Dosage: 0.125 MG, 1X/DAY (TAKE 1 TAB BY MOUTH ONCE DAILY)
     Route: 048
  21. TRACLEER [Concomitant]
     Indication: PULMONARY HYPERTENSION
     Dosage: 125 MG, EVERY 12 HOURS
     Route: 048

REACTIONS (5)
  - Blood cortisol decreased [Unknown]
  - Fatigue [Unknown]
  - Depression [Unknown]
  - Oedema peripheral [Unknown]
  - Dyspnoea [Unknown]
